FAERS Safety Report 8189092 (Version 4)
Quarter: 2012Q4

REPORT INFORMATION
  Report Type: 
  Country: NZ (occurrence: NZ)
  Receive Date: 20111019
  Receipt Date: 20120904
  Transmission Date: 20130627
  Serious: Yes (Hospitalization, Other)
  Sender: FDA-Public Use
  Company Number: NZ-B.I. PHARMACEUTICALS,INC./RIDGEFIELD-2011-AU-01837AU

PATIENT
  Age: 78 Year
  Sex: Male

DRUGS (5)
  1. PRADAXA [Suspect]
     Indication: AORTIC VALVE REPLACEMENT
     Dosage: 300 mg
     Dates: end: 20111017
  2. SIMVASTATIN [Concomitant]
     Dosage: 10 mg
  3. CILAZAPRIL [Concomitant]
     Dosage: 0.5 mg
  4. THYROXINE [Concomitant]
     Dosage: 200 mcg
  5. PENMIX [Concomitant]
     Dosage: 20u mane, 20u pm

REACTIONS (4)
  - Cardiac valve replacement complication [Recovered/Resolved]
  - Angina unstable [Unknown]
  - Coronary artery occlusion [Unknown]
  - Dyspnoea [Unknown]
